FAERS Safety Report 8866420 (Version 3)
Quarter: 2015Q1

REPORT INFORMATION
  Report Type: Spontaneous
  Country: US (occurrence: US)
  Receive Date: 20121025
  Receipt Date: 20150115
  Transmission Date: 20150721
  Serious: Yes (Hospitalization, Other)
  Sender: FDA-Public Use
  Company Number: US-ASTRAZENECA-2012SE79625

PATIENT
  Age: 71 Year
  Sex: Female

DRUGS (9)
  1. TOPROL XL [Suspect]
     Active Substance: METOPROLOL SUCCINATE
     Indication: HYPERTENSION
     Route: 048
     Dates: start: 2006
  2. TOPROL XL [Suspect]
     Active Substance: METOPROLOL SUCCINATE
     Indication: HYPERTENSION
     Dosage: GENERIC 100 MG DAILY
     Route: 048
     Dates: start: 2010
  3. TOPROL XL [Suspect]
     Active Substance: METOPROLOL SUCCINATE
     Indication: DIABETES MELLITUS
     Dosage: GENERIC 100 MG DAILY
     Route: 048
     Dates: start: 2010
  4. ASPIRIN. [Suspect]
     Active Substance: ASPIRIN
     Indication: CEREBROVASCULAR ACCIDENT
     Route: 065
     Dates: start: 2006, end: 2006
  5. TOPROL XL [Suspect]
     Active Substance: METOPROLOL SUCCINATE
     Indication: BLOOD CHOLESTEROL INCREASED
     Dosage: GENERIC 100 MG DAILY
     Route: 048
     Dates: start: 2010
  6. METOPROLOL [Suspect]
     Active Substance: METOPROLOL
     Route: 065
  7. TOPROL XL [Suspect]
     Active Substance: METOPROLOL SUCCINATE
     Indication: DIABETES MELLITUS
     Route: 048
     Dates: start: 2006
  8. CRESTOR [Suspect]
     Active Substance: ROSUVASTATIN CALCIUM
     Indication: BLOOD CHOLESTEROL INCREASED
     Route: 048
     Dates: start: 2006
  9. TOPROL XL [Suspect]
     Active Substance: METOPROLOL SUCCINATE
     Indication: BLOOD CHOLESTEROL INCREASED
     Route: 048
     Dates: start: 2006

REACTIONS (14)
  - Malaise [Unknown]
  - Adverse event [Recovered/Resolved]
  - Cerebrovascular accident [Unknown]
  - Diabetes mellitus [Unknown]
  - Dizziness [Unknown]
  - Feeling abnormal [Recovered/Resolved]
  - Fluid retention [Unknown]
  - Renal disorder [Not Recovered/Not Resolved]
  - Arthritis [Unknown]
  - Rash macular [Not Recovered/Not Resolved]
  - Drug hypersensitivity [Not Recovered/Not Resolved]
  - Fear [Recovered/Resolved]
  - Blood pressure increased [Recovered/Resolved]
  - Hypoaesthesia [Recovered/Resolved]

NARRATIVE: CASE EVENT DATE: 2006
